FAERS Safety Report 6802676-8 (Version None)
Quarter: 2010Q2

REPORT INFORMATION
  Report Type: 
  Country: None (occurrence: None)
  Receive Date: 20100628
  Receipt Date: 20100311
  Transmission Date: 20101027
  Serious: Yes (Other)
  Sender: FDA-Public Use
  Company Number: US-ASTRAZENECA-2008UW24337

PATIENT
  Age: 586 Month
  Sex: Male
  Weight: 90.7 kg

DRUGS (15)
  1. SEROQUEL [Suspect]
     Indication: BIPOLAR DISORDER
     Dosage: 100 MG TO 300 MG
     Route: 048
     Dates: start: 20030501, end: 20060901
  2. SEROQUEL [Suspect]
     Dosage: 100 MG 2 TAB QHS
     Route: 048
     Dates: start: 20040528
  3. ABILIFY [Concomitant]
     Dates: start: 20050614
  4. THORAZINE [Concomitant]
     Dates: start: 20070101
  5. ZYPREXA [Concomitant]
     Dosage: 15 MG, 20 MG
     Dates: start: 20030501, end: 20050401
  6. BUPROPION HCL [Concomitant]
  7. TRAZODONE HCL [Concomitant]
     Dates: start: 20040101
  8. FASTING [Concomitant]
  9. CYMBALTA [Concomitant]
     Dates: start: 20060125
  10. STRATTERA [Concomitant]
     Dosage: 40 MG 2 TAB QAM
     Dates: start: 20060125
  11. LEVETHYROXINE [Concomitant]
     Dates: start: 20060125
  12. ATENOLOL [Concomitant]
     Indication: BLOOD PRESSURE
     Dosage: 25 MG TO 50 MG
     Dates: start: 20060125
  13. NIACIN [Concomitant]
     Dates: start: 20060125
  14. LITHIUM [Concomitant]
     Dosage: 300 MG TO 1200 MG
     Dates: start: 20040724
  15. EFFEXOR XR [Concomitant]
     Dates: start: 20040724

REACTIONS (3)
  - DIABETES MELLITUS [None]
  - ERECTILE DYSFUNCTION [None]
  - LIGAMENT RUPTURE [None]
